FAERS Safety Report 6553115-6 (Version None)
Quarter: 2010Q1

REPORT INFORMATION
  Report Type: 
  Country: None (occurrence: None)
  Receive Date: 20100127
  Receipt Date: 20090122
  Transmission Date: 20100710
  Serious: No
  Sender: FDA-Public Use
  Company Number: A0764816A

PATIENT
  Age: 59 Year
  Sex: Female

DRUGS (3)
  1. IMITREX [Suspect]
     Indication: MIGRAINE
     Route: 058
     Dates: end: 20020101
  2. INDERAL LA [Concomitant]
  3. MIDRIN [Concomitant]

REACTIONS (4)
  - ASTHENIA [None]
  - DIZZINESS [None]
  - NAUSEA [None]
  - RETCHING [None]
